FAERS Safety Report 11846119 (Version 1)
Quarter: 2015Q4

REPORT INFORMATION
  Report Type: Spontaneous
  Country: US (occurrence: US)
  Receive Date: 20151217
  Receipt Date: 20151217
  Transmission Date: 20160305
  Serious: Yes (Other)
  Sender: FDA-Public Use
  Company Number: US-HORIZON-RAV-0115-2015

PATIENT
  Age: 10 Year
  Sex: Male

DRUGS (5)
  1. PROTEIN [Concomitant]
     Active Substance: PROTEIN
     Dosage: 18 G
  2. PRO-PHREE [Concomitant]
  3. TOPAMAX [Concomitant]
     Active Substance: TOPIRAMATE
     Indication: SEIZURE
  4. RAVICTI [Suspect]
     Active Substance: GLYCEROL PHENYLBUTYRATE
     Indication: UREA CYCLE ENZYME DEFICIENCY
     Dosage: 2.3 ML TID
  5. L-CITRULLINE [Concomitant]
     Active Substance: CITRULLINE

REACTIONS (1)
  - Seizure [Unknown]

NARRATIVE: CASE EVENT DATE: 2014
